FAERS Safety Report 13297326 (Version 2)
Quarter: 2018Q1

REPORT INFORMATION
  Report Type: Spontaneous
  Country: IT (occurrence: IT)
  Receive Date: 20170306
  Receipt Date: 20180117
  Transmission Date: 20180508
  Serious: Yes (Hospitalization, Other)
  Sender: FDA-Public Use
  Company Number: IT-GLAXOSMITHKLINE-IT2017030356

PATIENT
  Age: 13 Year
  Sex: Male

DRUGS (8)
  1. VALPROIC ACID. [Suspect]
     Active Substance: VALPROIC ACID
     Indication: PARTIAL SEIZURES
  2. LAMOTRIGINE. [Interacting]
     Active Substance: LAMOTRIGINE
     Indication: PARTIAL SEIZURES
     Dosage: DRUG REDUCED
     Route: 065
  3. VALPROIC ACID. [Suspect]
     Active Substance: VALPROIC ACID
     Indication: EPILEPSY
     Dosage: UNK
  4. TOPIRAMATE. [Suspect]
     Active Substance: TOPIRAMATE
     Indication: EPILEPSY
     Dosage: UNK
     Route: 065
  5. LAMOTRIGINE. [Suspect]
     Active Substance: LAMOTRIGINE
     Indication: EPILEPSY
     Dosage: UNK
     Route: 065
  6. IBUPROFEN. [Interacting]
     Active Substance: IBUPROFEN
     Indication: PYREXIA
     Dosage: EQUAL TO 100 MG / KG / DAY
  7. PARACETAMOL [Interacting]
     Active Substance: ACETAMINOPHEN
     Indication: PYREXIA
     Dosage: TOTAL DOSAGE OF 6 G/DAY, EQUAL TO 160 MG/KG/DAY, OR 4 G/DAY, EQUAL TO 100 MG/KG/DAY
  8. TOPIRAMATE. [Suspect]
     Active Substance: TOPIRAMATE
     Indication: PARTIAL SEIZURES

REACTIONS (12)
  - Drug interaction [Unknown]
  - Pruritus generalised [Unknown]
  - Rash maculo-papular [Recovered/Resolved]
  - Intentional product misuse [Recovered/Resolved]
  - Overdose [Recovered/Resolved]
  - Drug-induced liver injury [Recovered/Resolved]
  - Prothrombin time abnormal [Unknown]
  - Lip oedema [Unknown]
  - Hypertransaminasaemia [Unknown]
  - Toxicity to various agents [Unknown]
  - Acute hepatic failure [Recovered/Resolved]
  - Angular cheilitis [Unknown]
